FAERS Safety Report 5379134-3 (Version None)
Quarter: 2007Q2

REPORT INFORMATION
  Report Type: 
  Country: None (occurrence: None)
  Receive Date: 20070530
  Receipt Date: 20070305
  Transmission Date: 20071010
  Serious: No
  Sender: FDA-Public Use
  Company Number: 2007PV031127

PATIENT
  Age: 64 Year
  Sex: Male
  Weight: 135.1719 kg

DRUGS (10)
  1. BYETTA [Suspect]
     Indication: DIABETES MELLITUS INSULIN-DEPENDENT
     Dosage: 5 MCG; BID; SC, 5 MCG; BID; SC, 5 MCG; QAM; SC, 10 MCG; QPM; SC, 5 MCG; BID; SC, 5 MCG; QD; SC
     Route: 058
     Dates: start: 20061201, end: 20061201
  2. BYETTA [Suspect]
     Indication: DIABETES MELLITUS INSULIN-DEPENDENT
     Dosage: 5 MCG; BID; SC, 5 MCG; BID; SC, 5 MCG; QAM; SC, 10 MCG; QPM; SC, 5 MCG; BID; SC, 5 MCG; QD; SC
     Route: 058
     Dates: start: 20070221, end: 20070225
  3. BYETTA [Suspect]
     Indication: DIABETES MELLITUS INSULIN-DEPENDENT
     Dosage: 5 MCG; BID; SC, 5 MCG; BID; SC, 5 MCG; QAM; SC, 10 MCG; QPM; SC, 5 MCG; BID; SC, 5 MCG; QD; SC
     Route: 058
     Dates: start: 20070221, end: 20070225
  4. BYETTA [Suspect]
     Indication: DIABETES MELLITUS INSULIN-DEPENDENT
     Dosage: 5 MCG; BID; SC, 5 MCG; BID; SC, 5 MCG; QAM; SC, 10 MCG; QPM; SC, 5 MCG; BID; SC, 5 MCG; QD; SC
     Route: 058
     Dates: start: 20070301, end: 20070301
  5. BYETTA [Suspect]
     Indication: DIABETES MELLITUS INSULIN-DEPENDENT
     Dosage: 5 MCG; BID; SC, 5 MCG; BID; SC, 5 MCG; QAM; SC, 10 MCG; QPM; SC, 5 MCG; BID; SC, 5 MCG; QD; SC
     Route: 058
     Dates: start: 20061201
  6. BYETTA [Suspect]
     Indication: DIABETES MELLITUS INSULIN-DEPENDENT
     Dosage: 5 MCG; BID; SC, 5 MCG; BID; SC, 5 MCG; QAM; SC, 10 MCG; QPM; SC, 5 MCG; BID; SC, 5 MCG; QD; SC
     Route: 058
     Dates: start: 20070304
  7. NOVALOG INSULIN [Concomitant]
  8. NOVALOG INSULIN [Concomitant]
  9. NOVALOG INSULIN [Concomitant]
  10. LANTUS [Concomitant]

REACTIONS (3)
  - FEELING ABNORMAL [None]
  - NAUSEA [None]
  - WEIGHT DECREASED [None]
